FAERS Safety Report 7721188-0 (Version None)
Quarter: 2011Q3

REPORT INFORMATION
  Report Type: 
  Country: None (occurrence: None)
  Receive Date: 20110825
  Receipt Date: 20110817
  Transmission Date: 20111222
  Serious: Yes (Death, Hospitalization)
  Sender: FDA-Public Use
  Company Number: 15810120

PATIENT
  Age: 72 Year
  Sex: Female

DRUGS (4)
  1. ENOXAPARIN SODIUM [Concomitant]
  2. APIXABAN [Suspect]
     Indication: EMBOLISM
     Dosage: 10 MILLIGRAM 24 HOUR ORAL
     Route: 048
     Dates: start: 20110603, end: 20110606
  3. WARFARIN SODIUM [Suspect]
     Indication: EMBOLISM
     Dosage: 6 MILLIGRAM 24 HOUR ORAL
     Route: 048
     Dates: start: 20110603, end: 20110606
  4. PLACEBO [Concomitant]

REACTIONS (17)
  - SCIATICA [None]
  - CARDIO-RESPIRATORY ARREST [None]
  - TACHYPNOEA [None]
  - RALES [None]
  - COMA [None]
  - PULMONARY EMBOLISM [None]
  - CARDIAC ARREST [None]
  - DYSPNOEA [None]
  - GENERAL PHYSICAL HEALTH DETERIORATION [None]
  - HYPERHIDROSIS [None]
  - SINUS TACHYCARDIA [None]
  - RENAL FAILURE [None]
  - FEELING ABNORMAL [None]
  - SUPRAVENTRICULAR EXTRASYSTOLES [None]
  - RETROPERITONEAL HAEMORRHAGE [None]
  - HYPOVOLAEMIC SHOCK [None]
  - HAEMORRHAGIC ANAEMIA [None]
